FAERS Safety Report 13590801 (Version 1)
Quarter: 2017Q2

REPORT INFORMATION
  Report Type: Report from Study
  Country: KE (occurrence: KE)
  Receive Date: 20170530
  Receipt Date: 20170530
  Transmission Date: 20170830
  Serious: Yes (Other)
  Sender: FDA-Public Use
  Company Number: KE-RANBAXY-2015R1-94010

PATIENT

DRUGS (1)
  1. ISONIAZID. [Suspect]
     Active Substance: ISONIAZID
     Indication: INFECTION PROPHYLAXIS
     Dosage: 10 MG/KG, DAILY
     Route: 065

REACTIONS (1)
  - Tuberculosis [Unknown]
